FAERS Safety Report 9295847 (Version 1)
Quarter: 2013Q2

REPORT INFORMATION
  Report Type: Spontaneous
  Country: US (occurrence: US)
  Receive Date: 20130517
  Receipt Date: 20130517
  Transmission Date: 20140414
  Serious: No
  Sender: FDA-Public Use
  Company Number: US-PFIZER INC-2013150059

PATIENT
  Age: 50 Year
  Sex: Female
  Weight: 64.85 kg

DRUGS (7)
  1. CELEBREX [Suspect]
     Indication: ARTHRITIS
     Dosage: 100-200MG
  2. CELEBREX [Suspect]
     Dosage: 200 MG, DAILY
     Dates: start: 2013
  3. HYDROCORTISONE [Concomitant]
     Indication: HYPERADRENALISM
     Dosage: UNK
  4. REQUIP [Concomitant]
     Indication: RESTLESS LEGS SYNDROME
     Dosage: UNK
  5. LORTAB [Concomitant]
     Indication: PAIN
     Dosage: UNK
  6. CALCIUM [Concomitant]
     Indication: CALCIUM DEFICIENCY
     Dosage: UNK
  7. POTASSIUM [Concomitant]
     Indication: HYPOKALAEMIA
     Dosage: UNK

REACTIONS (1)
  - Hypertension [Not Recovered/Not Resolved]
